FAERS Safety Report 25008845 (Version 3)
Quarter: 2025Q2

REPORT INFORMATION
  Report Type: Spontaneous
  Country: FR (occurrence: FR)
  Receive Date: 20250225
  Receipt Date: 20250426
  Transmission Date: 20250716
  Serious: Yes (Hospitalization)
  Sender: AUROBINDO
  Company Number: FR-009507513-2502FRA002037

PATIENT
  Age: 79 Year
  Sex: Female
  Weight: 77 kg

DRUGS (4)
  1. CARBOPLATIN [Suspect]
     Active Substance: CARBOPLATIN
     Indication: Cervix carcinoma
     Route: 065
     Dates: start: 20230725, end: 20231113
  2. PEMBROLIZUMAB [Suspect]
     Active Substance: PEMBROLIZUMAB
     Indication: Cervix carcinoma
     Route: 042
     Dates: start: 20230725, end: 20231113
  3. PEMBROLIZUMAB [Suspect]
     Active Substance: PEMBROLIZUMAB
     Dosage: 4 MILLIGRAM, ONCE A DAY
     Route: 042
     Dates: start: 20230204, end: 20241212
  4. TAXOL [Suspect]
     Active Substance: PACLITAXEL
     Indication: Cervix carcinoma
     Route: 065
     Dates: start: 20230808, end: 20231113

REACTIONS (5)
  - Dyspnoea [Unknown]
  - Toxicity to various agents [Unknown]
  - Hypoxia [Recovered/Resolved]
  - Immune-mediated lung disease [Recovered/Resolved]
  - Pneumonia [Recovered/Resolved]

NARRATIVE: CASE EVENT DATE: 20250129
